FAERS Safety Report 8429703-9 (Version None)
Quarter: 2012Q2

REPORT INFORMATION
  Report Type: 
  Country: None (occurrence: None)
  Receive Date: 20120604
  Receipt Date: 20120519
  Transmission Date: 20120825
  Serious: Yes (Hospitalization)
  Sender: FDA-Public Use
  Company Number: IPC201205-000227

PATIENT
  Age: 79 Year
  Sex: Male

DRUGS (19)
  1. HYDRALAZINE HYDROCHLORIDE [Suspect]
     Dosage: 100 MG IN DIVIDED DOSES
  2. FERROUS SULFATE TAB [Suspect]
     Dosage: 325 MG
  3. INSULIN GLARGINE [Suspect]
     Dosage: 70 U
  4. LACTULOSE [Suspect]
     Indication: CONSTIPATION
     Dosage: 20 G AS NEEDED
  5. AMLODIPINE [Suspect]
     Dosage: 10 MG
  6. FUROSEMIDE [Suspect]
     Dosage: 40 MG
  7. LEVOTHYROXINE SODIUM [Suspect]
     Dosage: 88 UG
  8. FINASTERIDE [Suspect]
     Dosage: 5 MG
  9. ERGOCALCIFEROL [Suspect]
     Dosage: 50,000 U TWO TIMES A MONTH
  10. MIDAZOLAM [Suspect]
  11. METOPROLOL TARTRATE [Suspect]
     Dosage: 200 MG
  12. ASPIRIN [Suspect]
     Dosage: 81 MG
  13. GEMFIBROZIL [Suspect]
     Dosage: 600 MG TWO TIMES A DAY
  14. TRAVOPROST [Suspect]
  15. MEPERIDINE HCL [Suspect]
  16. LISINOPRIL [Suspect]
     Dosage: 20 MG
  17. DOXAZOSIN MESYLATE [Suspect]
     Dosage: 8 MG
  18. SIMVASTATIN [Suspect]
     Dosage: 20 MG DAILY FOR 1.5 YEARS, 40 MG DAILY FOR 9 MONTHS
  19. SODIUM POLYSTYRENE SULFONATE [Suspect]
     Dosage: 30 G

REACTIONS (11)
  - RHABDOMYOLYSIS [None]
  - EROSIVE DUODENITIS [None]
  - MYOPATHY [None]
  - TEARFULNESS [None]
  - RENAL IMPAIRMENT [None]
  - ILEUS [None]
  - RESPIRATORY RATE INCREASED [None]
  - GAIT DISTURBANCE [None]
  - IRON DEFICIENCY ANAEMIA [None]
  - ANXIETY [None]
  - BLOOD PRESSURE SYSTOLIC INCREASED [None]
